FAERS Safety Report 13423139 (Version 4)
Quarter: 2017Q2

REPORT INFORMATION
  Report Type: Spontaneous
  Country: IT (occurrence: IT)
  Receive Date: 20170410
  Receipt Date: 20170425
  Transmission Date: 20170830
  Serious: Yes (Hospitalization)
  Sender: FDA-Public Use
  Company Number: PHHY2017IT053364

PATIENT
  Sex: Female

DRUGS (5)
  1. KETOTIFEN [Suspect]
     Active Substance: KETOTIFEN
     Indication: INTENTIONAL SELF-INJURY
     Dosage: 4 DF, ONCE/SINGLE
     Route: 065
     Dates: start: 20170118
  2. EXPOSE [Suspect]
     Active Substance: EPERISONE HYDROCHLORIDE
     Indication: INTENTIONAL SELF-INJURY
     Dosage: 4 DF, ONCE/SINGLE
     Route: 065
     Dates: start: 20170118
  3. MONTELUKAST ACCORD [Suspect]
     Active Substance: MONTELUKAST\MONTELUKAST SODIUM
     Indication: INTENTIONAL SELF-INJURY
     Dosage: 4 DF, QW
     Route: 048
     Dates: start: 20170118
  4. METFORMIN [Suspect]
     Active Substance: METFORMIN HYDROCHLORIDE
     Indication: INTENTIONAL SELF-INJURY
     Dosage: 850 MG, ONCE/SINGLE
     Route: 048
     Dates: start: 20170118
  5. TACHIPIRINA [Suspect]
     Active Substance: ACETAMINOPHEN
     Indication: INTENTIONAL SELF-INJURY
     Dosage: 8000 MG, ONCE/SINGLE
     Route: 048
     Dates: start: 20170118

REACTIONS (4)
  - Vomiting [Unknown]
  - Drug use disorder [Unknown]
  - Intentional self-injury [Unknown]
  - Overdose [Unknown]

NARRATIVE: CASE EVENT DATE: 20170118
